FAERS Safety Report 9733162 (Version 1)
Quarter: 2013Q4

REPORT INFORMATION
  Report Type: Spontaneous
  Country: US (occurrence: US)
  Receive Date: 20131204
  Receipt Date: 20131204
  Transmission Date: 20140711
  Serious: Yes (Hospitalization)
  Sender: FDA-Public Use
  Company Number: PHHY2013US136431

PATIENT
  Age: 28 Year
  Sex: Male

DRUGS (3)
  1. METHOTREXATE [Suspect]
  2. USTEKINUMAB [Suspect]
  3. PREDNISONE [Concomitant]

REACTIONS (10)
  - Hypersensitivity vasculitis [Recovering/Resolving]
  - Erythema [Recovering/Resolving]
  - Rash [Recovering/Resolving]
  - Muscle swelling [Recovering/Resolving]
  - Abdominal tenderness [Recovering/Resolving]
  - Pain in extremity [Recovering/Resolving]
  - Local swelling [Recovering/Resolving]
  - Myalgia [Recovering/Resolving]
  - Anaemia [Recovering/Resolving]
  - Therapeutic response decreased [Unknown]
